FAERS Safety Report 6496935-9 (Version None)
Quarter: 2009Q4

REPORT INFORMATION
  Report Type: 
  Country: None (occurrence: None)
  Receive Date: 20091215
  Receipt Date: 20090813
  Transmission Date: 20100525
  Serious: No
  Sender: FDA-Public Use
  Company Number: A0549875A

PATIENT
  Age: 69 Year
  Sex: Male

DRUGS (3)
  1. AVODART [Suspect]
     Indication: BENIGN PROSTATIC HYPERPLASIA
     Dosage: .5MG PER DAY
     Route: 048
     Dates: start: 20040901
  2. SYNTHROID [Concomitant]
  3. PSORCON E [Concomitant]
     Route: 061

REACTIONS (3)
  - BLOOD PRESSURE INCREASED [None]
  - DRY MOUTH [None]
  - POLLAKIURIA [None]
